FAERS Safety Report 6511440-9 (Version None)
Quarter: 2009Q4

REPORT INFORMATION
  Report Type: 
  Country: None (occurrence: None)
  Receive Date: 20091222
  Receipt Date: 20091211
  Transmission Date: 20100525
  Serious: Yes (Other)
  Sender: FDA-Public Use
  Company Number: US-ELI_LILLY_AND_COMPANY-US200911002139

PATIENT
  Sex: Female
  Weight: 91.61 kg

DRUGS (12)
  1. CYMBALTA [Suspect]
     Indication: DEPRESSION
     Dosage: 30 MG, UNK
     Dates: start: 20060101, end: 20070301
  2. CYMBALTA [Suspect]
     Dosage: 60 MG, UNK
     Dates: end: 20070301
  3. ZYRTEC [Concomitant]
     Indication: HYPERSENSITIVITY
     Dosage: 10 MG, UNK
  4. SAM-E [Concomitant]
     Indication: HORMONE THERAPY
     Dosage: 1 D/F, UNK
  5. ACETAMINOPHEN [Concomitant]
     Dosage: 1 D/F, UNK
  6. DYAZIDE [Concomitant]
  7. ACCUPRIL [Concomitant]
  8. XANAX [Concomitant]
  9. AMBIEN [Concomitant]
  10. BUSPAR [Concomitant]
  11. LEVOXYL [Concomitant]
  12. NEXIUM [Concomitant]

REACTIONS (3)
  - BILE DUCT PRESSURE [None]
  - GALLBLADDER OPERATION [None]
  - HEPATOTOXICITY [None]
